FAERS Safety Report 8407500-8 (Version None)
Quarter: 2012Q2

REPORT INFORMATION
  Report Type: 
  Country: None (occurrence: None)
  Receive Date: 20120604
  Receipt Date: 20120530
  Transmission Date: 20120825
  Serious: Yes (Other)
  Sender: FDA-Public Use
  Company Number: US-PFIZER INC-2012100278

PATIENT
  Sex: Female
  Weight: 86.16 kg

DRUGS (12)
  1. NEURONTIN [Suspect]
     Indication: HYPOAESTHESIA
     Dosage: 100 MG, 3X/DAY
     Route: 048
     Dates: start: 20110101
  2. ASPIRIN [Concomitant]
     Dosage: UNK, 1X/DAY
  3. CRESTOR [Concomitant]
     Indication: BLOOD CHOLESTEROL INCREASED
     Dosage: 10 MG, 1X/DAY
     Dates: start: 20110401
  4. FUROSEMIDE [Concomitant]
     Indication: OEDEMA
     Dosage: 40 UNK, 1X/DAY
     Dates: start: 20111201
  5. TRAZODONE [Concomitant]
     Dosage: UNK
  6. PRILOSEC [Concomitant]
     Indication: GASTROOESOPHAGEAL REFLUX DISEASE
     Dosage: 20 MG, 1X/DAY
     Dates: start: 20110401
  7. LANTUS [Concomitant]
     Indication: DIABETES MELLITUS
     Dosage: UNK
  8. HUMALOG [Concomitant]
     Indication: DIABETES MELLITUS
     Dosage: UNK
  9. NEURONTIN [Suspect]
     Indication: DIABETIC NEUROPATHY
  10. CALCIUM [Concomitant]
     Dosage: UNK,1X/DAY
  11. MICARDIS [Concomitant]
     Indication: HYPERTENSION
     Dosage: 40 MG, 1X/DAY 2 TABLETS
     Dates: start: 20111201
  12. NEURONTIN [Suspect]
     Indication: NEUROPATHY PERIPHERAL

REACTIONS (3)
  - CATARACT [None]
  - RETINAL HAEMORRHAGE [None]
  - VISUAL ACUITY REDUCED [None]
